FAERS Safety Report 24963252 (Version 1)
Quarter: 2025Q1

REPORT INFORMATION
  Report Type: Spontaneous
  Country: CA (occurrence: CA)
  Receive Date: 20250213
  Receipt Date: 20250213
  Transmission Date: 20250408
  Serious: Yes (Other)
  Sender: CSL BEHRING
  Company Number: CA-BEH-2025195208

PATIENT
  Age: 94 Year
  Sex: Female

DRUGS (1)
  1. HUMAN IMMUNOGLOBULIN G [Suspect]
     Active Substance: HUMAN IMMUNOGLOBULIN G
     Indication: Product used for unknown indication
     Route: 042

REACTIONS (8)
  - Acute pulmonary oedema [Unknown]
  - Blood culture negative [Unknown]
  - Blood pressure increased [Unknown]
  - Dyspnoea [Unknown]
  - Hypertension [Unknown]
  - Hypervolaemia [Unknown]
  - Tachycardia [Unknown]
  - Tachypnoea [Unknown]
